FAERS Safety Report 5607484-1 (Version None)
Quarter: 2008Q1

REPORT INFORMATION
  Report Type: 
  Country: None (occurrence: None)
  Receive Date: 20080130
  Receipt Date: 20080117
  Transmission Date: 20080703
  Serious: Yes (Hospitalization)
  Sender: FDA-Public Use
  Company Number: US-ELI_LILLY_AND_COMPANY-US200801003686

PATIENT
  Age: 11 Year
  Sex: Male
  Weight: 36.281 kg

DRUGS (1)
  1. HUMATROPE [Suspect]
     Dosage: UNK, UNKNOWN
     Dates: start: 20070201

REACTIONS (3)
  - MONONUCLEOSIS SYNDROME [None]
  - PNEUMONIA [None]
  - URETHRAL STENOSIS [None]
